FAERS Safety Report 5080046-3 (Version None)
Quarter: 2006Q3

REPORT INFORMATION
  Report Type: 
  Country: None (occurrence: None)
  Receive Date: 20060810
  Receipt Date: 20060731
  Transmission Date: 20061208
  Serious: Yes (Other)
  Sender: FDA-Public Use
  Company Number: 2006094507

PATIENT
  Age: 58 Year
  Sex: Female
  Weight: 79.3795 kg

DRUGS (9)
  1. XALATAN [Suspect]
     Indication: GLAUCOMA
     Dosage: 2 DROP (BEDTIME), OPHTHALMIC
     Route: 047
     Dates: start: 20000101
  2. OSCAL (CALCIUM CARBONATE) [Concomitant]
  3. ALL OTHER THERAPEUTIC PRODUCTS (ALL OTHER THERAPEUTIC PRODUCTS) [Concomitant]
  4. SYNTHROID [Concomitant]
  5. ADVAIR DISKUS 100/50 [Concomitant]
  6. PROTONIX [Concomitant]
  7. VYTORIN [Concomitant]
  8. SORBITOL (SORBITOL) [Concomitant]
  9. ASPIRIN [Concomitant]

REACTIONS (4)
  - ASTHENOPIA [None]
  - DIABETES MELLITUS [None]
  - EYE DISORDER [None]
  - SLEEP APNOEA SYNDROME [None]
